FAERS Safety Report 4572553-4 (Version None)
Quarter: 2005Q1

REPORT INFORMATION
  Report Type: 
  Country: None (occurrence: None)
  Receive Date: 20050208
  Receipt Date: 20050127
  Transmission Date: 20050727
  Serious: Yes (Other)
  Sender: FDA-Public Use
  Company Number: US-JNJFOC-20050200106

PATIENT
  Sex: Female
  Weight: 63.5 kg

DRUGS (18)
  1. INFLIXIMAB [Suspect]
     Indication: RHEUMATOID ARTHRITIS
     Route: 042
  2. AMITRIPTYLINE [Concomitant]
  3. ANTI-ARRHYTHMIC [Concomitant]
  4. BUTALBITAL [Concomitant]
  5. COZAAR [Concomitant]
  6. FOLIC ACID [Concomitant]
  7. GRISACTIN [Concomitant]
  8. HYDROCHLOROTHIAZIDE [Concomitant]
  9. METOCLOPRAMIDE [Concomitant]
  10. NADOLOL [Concomitant]
  11. OXYCONTIN [Concomitant]
  12. SYNTHROID [Concomitant]
  13. ULTRAM [Concomitant]
  14. NEXIUM [Concomitant]
  15. BEXTRA [Concomitant]
  16. TIZANIDINE HCL [Concomitant]
  17. CENESTIN [Concomitant]
  18. GLUCOSAMINE [Concomitant]
     Dosage: 3 TABS.

REACTIONS (1)
  - SKIN CANCER [None]
